FAERS Safety Report 7671377-9 (Version None)
Quarter: 2011Q3

REPORT INFORMATION
  Report Type: 
  Country: None (occurrence: None)
  Receive Date: 20110809
  Receipt Date: 20110802
  Transmission Date: 20111222
  Serious: Yes (Congenital Anomaly)
  Sender: FDA-Public Use
  Company Number: US-B.I. PHARMACEUTICALS,INC./RIDGEFIELD-2011-BP-17382BP

PATIENT
  Sex: Male
  Weight: 2.41 kg

DRUGS (4)
  1. RETROVIR [Concomitant]
     Route: 064
     Dates: start: 20110327, end: 20110327
  2. RETROVIR [Concomitant]
     Indication: MATERNAL EXPOSURE DURING PREGNANCY
     Route: 064
     Dates: start: 20110327, end: 20110327
  3. VIRAMUNE [Suspect]
     Indication: MATERNAL EXPOSURE DURING PREGNANCY
     Route: 064
     Dates: start: 20101101
  4. LAMIVUDINE + ZIDOVUDINE [Concomitant]
     Indication: MATERNAL EXPOSURE DURING PREGNANCY
     Route: 064
     Dates: start: 20101101

REACTIONS (2)
  - SMALL FOR DATES BABY [None]
  - POLYDACTYLY [None]
